FAERS Safety Report 15311048 (Version 2)
Quarter: 2018Q3

REPORT INFORMATION
  Report Type: Spontaneous
  Country: DE (occurrence: DE)
  Receive Date: 20180823
  Receipt Date: 20180926
  Transmission Date: 20181010
  Serious: Yes (Other)
  Sender: FDA-Public Use
  Company Number: DE-INCYTE CORPORATION-2018IN008416

PATIENT

DRUGS (4)
  1. JAKAVI [Suspect]
     Active Substance: RUXOLITINIB
     Indication: POLYCYTHAEMIA VERA
     Dosage: 5 MG, BID (1?0?1)
     Route: 048
     Dates: start: 20180502
  2. ASPIRIN. [Concomitant]
     Active Substance: ASPIRIN
     Indication: PRODUCT USED FOR UNKNOWN INDICATION
     Dosage: 100 MG, UNK
     Route: 048
  3. JAKAVI [Suspect]
     Active Substance: RUXOLITINIB
     Dosage: 10 MG, BID (1?0?1) (10 MG/2X)
     Route: 048
     Dates: start: 20180523, end: 20180726
  4. XOLAIR [Concomitant]
     Active Substance: OMALIZUMAB
     Indication: PRODUCT USED FOR UNKNOWN INDICATION
     Dosage: UNK
     Route: 065

REACTIONS (14)
  - International normalised ratio increased [Unknown]
  - Blood folate increased [Unknown]
  - Hepatotoxicity [Recovered/Resolved]
  - Mean cell volume decreased [Unknown]
  - Prothrombin time prolonged [Unknown]
  - Reticulocyte count decreased [Unknown]
  - Blood fibrinogen decreased [Unknown]
  - Transaminases increased [Unknown]
  - Red blood cell count increased [Unknown]
  - Bilirubin conjugated abnormal [Unknown]
  - Mean cell haemoglobin decreased [Unknown]
  - White blood cell count decreased [Unknown]
  - Mean cell haemoglobin concentration decreased [Unknown]
  - Red cell distribution width increased [Unknown]

NARRATIVE: CASE EVENT DATE: 20180724
